FAERS Safety Report 6252030-5 (Version None)
Quarter: 2009Q2

REPORT INFORMATION
  Report Type: 
  Country: None (occurrence: None)
  Receive Date: 20090630
  Receipt Date: 20070901
  Transmission Date: 20091009
  Serious: Yes (Hospitalization)
  Sender: FDA-Public Use
  Company Number: US-ROCHE-638695

PATIENT
  Sex: Male

DRUGS (6)
  1. ENFUVIRTIDE [Suspect]
     Route: 065
     Dates: start: 20050208, end: 20080814
  2. EPZICOM [Concomitant]
     Dates: start: 20050208, end: 20080814
  3. KALETRA [Concomitant]
     Dates: start: 20050208, end: 20051213
  4. KALETRA [Concomitant]
     Dates: start: 20051213, end: 20060719
  5. KALETRA [Concomitant]
     Dates: start: 20060719, end: 20080814
  6. VIRAMUNE [Concomitant]
     Dates: start: 20050208, end: 20080814

REACTIONS (1)
  - JAW FRACTURE [None]
